FAERS Safety Report 4620152-8 (Version None)
Quarter: 2005Q1

REPORT INFORMATION
  Report Type: 
  Country: None (occurrence: None)
  Receive Date: 20050324
  Receipt Date: 20050308
  Transmission Date: 20050727
  Serious: Yes (Death, Other)
  Sender: FDA-Public Use
  Company Number: GB-2005-003654

PATIENT
  Age: 71 Year
  Sex: Male

DRUGS (3)
  1. FLUDARABINE PHOSPHATE [Suspect]
     Indication: CHRONIC LYMPHOCYTIC LEUKAEMIA
     Dosage: INTRAVENOUS
     Route: 042
     Dates: end: 19990901
  2. CYCLOPHOSPHAMIDE [Suspect]
     Dosage: 250 MG/M2
     Dates: end: 19990901
  3. MITOXANTRONE [Suspect]
     Dosage: 5MG/M2
     Dates: end: 19990901

REACTIONS (3)
  - CHRONIC LYMPHOCYTIC LEUKAEMIA TRANSFORMATION [None]
  - EPSTEIN-BARR VIRUS ANTIGEN POSITIVE [None]
  - LABORATORY TEST ABNORMAL [None]
